FAERS Safety Report 23614687 (Version 1)
Quarter: 2024Q1

REPORT INFORMATION
  Report Type: Spontaneous
  Country: US (occurrence: US)
  Receive Date: 20240311
  Receipt Date: 20240311
  Transmission Date: 20240410
  Serious: No
  Sender: FDA-Public Use
  Company Number: US-BRISTOL-MYERS SQUIBB COMPANY-2024-036160

PATIENT
  Sex: Male
  Weight: 112 kg

DRUGS (2)
  1. NULOJIX [Suspect]
     Active Substance: BELATACEPT
     Indication: Renal transplant
     Route: 042
     Dates: start: 202112, end: 202309
  2. NULOJIX [Suspect]
     Active Substance: BELATACEPT
     Route: 042

REACTIONS (1)
  - Weight increased [Recovered/Resolved]
